FAERS Safety Report 11483820 (Version 1)
Quarter: 2015Q3

REPORT INFORMATION
  Report Type: Spontaneous
  Country: US (occurrence: US)
  Receive Date: 20150903
  Receipt Date: 20150903
  Transmission Date: 20151125
  Serious: No
  Sender: FDA-Public Use
  Company Number: US-ELI_LILLY_AND_COMPANY-US201207001959

PATIENT
  Age: 25 Year
  Sex: Male

DRUGS (4)
  1. CYMBALTA [Suspect]
     Active Substance: DULOXETINE HYDROCHLORIDE
     Dosage: 30 MG, BID
  2. CYMBALTA [Suspect]
     Active Substance: DULOXETINE HYDROCHLORIDE
     Indication: DEPRESSION
     Dosage: 30 MG, QD
  3. FLEXERIL [Concomitant]
     Active Substance: CYCLOBENZAPRINE HYDROCHLORIDE
     Dosage: UNK, UNKNOWN
     Route: 065
  4. PREVACID [Concomitant]
     Active Substance: LANSOPRAZOLE

REACTIONS (14)
  - Feeling abnormal [Unknown]
  - Anger [Unknown]
  - Gait disturbance [Unknown]
  - Withdrawal syndrome [Unknown]
  - Depression [Unknown]
  - Nightmare [Unknown]
  - Dizziness [Unknown]
  - Musculoskeletal pain [Unknown]
  - Drug dose omission [Unknown]
  - Headache [Unknown]
  - Nausea [Unknown]
  - Vomiting [Unknown]
  - Hypoaesthesia [Unknown]
  - Malaise [Unknown]
